FAERS Safety Report 12986634 (Version 1)
Quarter: 2016Q4

REPORT INFORMATION
  Report Type: Spontaneous
  Country: NL (occurrence: NL)
  Receive Date: 20161130
  Receipt Date: 20161130
  Transmission Date: 20170207
  Serious: Yes (Other)
  Sender: FDA-Public Use
  Company Number: NL-GLAXOSMITHKLINE-NL2016GSK174723

PATIENT
  Age: 50 Year
  Sex: Female
  Weight: 107 kg

DRUGS (12)
  1. OLANZAPINE. [Interacting]
     Active Substance: OLANZAPINE
     Indication: INSOMNIA
     Dosage: 5 MG, QD
     Dates: start: 20161026, end: 201611
  2. OLANZAPINE. [Interacting]
     Active Substance: OLANZAPINE
     Indication: BIPOLAR DISORDER
  3. LAMOTRIGINE. [Interacting]
     Active Substance: LAMOTRIGINE
     Indication: NIGHTMARE
     Dosage: 250 MG, QD
  4. DOXAZOSIN [Interacting]
     Active Substance: DOXAZOSIN\DOXAZOSIN MESYLATE
     Indication: BIPOLAR DISORDER
  5. DOXAZOSIN [Interacting]
     Active Substance: DOXAZOSIN\DOXAZOSIN MESYLATE
     Indication: INSOMNIA
     Dosage: 40 MG, QD
     Dates: start: 20161110, end: 201611
  6. LEVOTHYROXINE. [Concomitant]
     Active Substance: LEVOTHYROXINE
     Indication: PRODUCT USED FOR UNKNOWN INDICATION
     Dosage: 100 UG, QD
     Dates: start: 20160901
  7. LAMOTRIGINE. [Interacting]
     Active Substance: LAMOTRIGINE
     Indication: INSOMNIA
  8. LAMOTRIGINE. [Suspect]
     Active Substance: LAMOTRIGINE
     Indication: BIPOLAR DISORDER
     Dosage: UNK UNK, Z
     Dates: start: 20130301
  9. OMEPRAZOL [Concomitant]
     Active Substance: OMEPRAZOLE
     Indication: PRODUCT USED FOR UNKNOWN INDICATION
     Dosage: 20 MG, QD
  10. CETOMACROGOL + VASELINE [Concomitant]
     Indication: PRODUCT USED FOR UNKNOWN INDICATION
     Dosage: UNK UNK, PRN
     Dates: start: 2013
  11. DOXAZOSIN [Interacting]
     Active Substance: DOXAZOSIN\DOXAZOSIN MESYLATE
     Indication: NIGHTMARE
  12. OLANZAPINE. [Interacting]
     Active Substance: OLANZAPINE
     Indication: NIGHTMARE

REACTIONS (3)
  - Arrhythmia [Recovered/Resolved]
  - Drug interaction [Unknown]
  - Tachycardia [Recovered/Resolved]

NARRATIVE: CASE EVENT DATE: 20161110
